FAERS Safety Report 23148132 (Version 1)
Quarter: 2023Q4

REPORT INFORMATION
  Report Type: Report from Study
  Country: MY (occurrence: MY)
  Receive Date: 20231106
  Receipt Date: 20231106
  Transmission Date: 20240110
  Serious: Yes (Other)
  Sender: FDA-Public Use
  Company Number: MY-002147023-NVSC2023MY234553

PATIENT
  Age: 21 Year
  Sex: Female
  Weight: 40.6 kg

DRUGS (7)
  1. ELTROMBOPAG [Suspect]
     Active Substance: ELTROMBOPAG
     Indication: Immune thrombocytopenia
     Dosage: 25 MG, QD
     Route: 048
     Dates: start: 20230731
  2. INVESTIGATIONAL PRODUCT [Suspect]
     Active Substance: INVESTIGATIONAL PRODUCT
     Indication: Immune thrombocytopenia
     Dosage: CODE NOT BROKEN
     Route: 042
     Dates: start: 20230731
  3. PLACEBO [Suspect]
     Active Substance: UNSPECIFIED INGREDIENT
     Indication: Immune thrombocytopenia
     Dosage: CODE NOT BROKEN
     Route: 042
     Dates: start: 20230731
  4. VAY-736 [Suspect]
     Active Substance: VAY-736
     Indication: Immune thrombocytopenia
     Dosage: CODE NOT BROKEN
     Route: 042
     Dates: start: 20230731
  5. HYDROCORTISONE [Concomitant]
     Active Substance: HYDROCORTISONE
     Indication: Immune thrombocytopenia
     Dosage: UNK
     Route: 065
     Dates: start: 20230828, end: 20230828
  6. ACETAMINOPHEN [Concomitant]
     Active Substance: ACETAMINOPHEN
     Indication: Immune thrombocytopenia
     Dosage: UNK
     Route: 065
     Dates: start: 20230828, end: 20230828
  7. CHLORPHENIRAMINE MALEATE [Concomitant]
     Active Substance: CHLORPHENIRAMINE MALEATE
     Indication: Immune thrombocytopenia
     Dosage: UNK
     Route: 065
     Dates: start: 20230828, end: 20230828

REACTIONS (1)
  - Intentional product misuse [Recovered/Resolved]

NARRATIVE: CASE EVENT DATE: 20230912
